FAERS Safety Report 6335794-1 (Version None)
Quarter: 2009Q3

REPORT INFORMATION
  Report Type: 
  Country: None (occurrence: None)
  Receive Date: 20090828
  Receipt Date: 20090818
  Transmission Date: 20100115
  Serious: Yes (Other)
  Sender: FDA-Public Use
  Company Number: ADR14362009

PATIENT
  Age: 52 Year
  Sex: Male

DRUGS (8)
  1. CITALOPRAM HYDROBROMIDE [Suspect]
     Indication: DEPRESSION
     Dosage: ORAL
     Route: 048
  2. AMITRIPTYLINE [Concomitant]
  3. ATAZANAVIR [Concomitant]
  4. EZETIMIBE [Concomitant]
  5. FLUVASTATIN [Concomitant]
  6. NEVIRAPINE [Concomitant]
  7. TENOFOVIR DISOPROXIL FUMARATE [Concomitant]
  8. LEVOTHYROXINE SODIUM [Concomitant]

REACTIONS (4)
  - DRUG INTOLERANCE [None]
  - EXTRAPYRAMIDAL DISORDER [None]
  - MYOCLONUS [None]
  - TREMOR [None]
